FAERS Safety Report 8116026-0 (Version None)
Quarter: 2012Q1

REPORT INFORMATION
  Report Type: 
  Country: None (occurrence: None)
  Receive Date: 20120118
  Receipt Date: 20120103
  Transmission Date: 20120608
  Serious: Yes (Hospitalization)
  Sender: FDA-Public Use
  Company Number: 2011PROUSA00856

PATIENT
  Age: 78 Year
  Sex: Male
  Weight: 89.8 kg

DRUGS (11)
  1. SIMVASTATIN [Concomitant]
  2. PROVENGE [Suspect]
     Indication: PROSTATE CANCER METASTATIC
     Dosage: 250 ML, SINGLE, INTRAVENOUS
     Route: 042
     Dates: start: 20111209, end: 20111209
  3. NUCYNTA [Concomitant]
  4. PREDELTIN (PREDNISONE) [Suspect]
  5. MEGACE [Concomitant]
  6. HYDROCHLOROTHIAZIDE [Concomitant]
  7. LISINOPRIL [Concomitant]
  8. LUPRON [Concomitant]
  9. SOLU-MEDROL [Suspect]
  10. DENOSUMAB (DENOSUMAB) [Concomitant]
  11. ASPIRIN [Concomitant]

REACTIONS (7)
  - DIARRHOEA [None]
  - MENTAL STATUS CHANGES [None]
  - CONFUSIONAL STATE [None]
  - LOSS OF CONSCIOUSNESS [None]
  - DRUG HYPERSENSITIVITY [None]
  - LEUKOCYTOSIS [None]
  - FATIGUE [None]
